FAERS Safety Report 4446582-5 (Version None)
Quarter: 2004Q3

REPORT INFORMATION
  Report Type: 
  Country: None (occurrence: None)
  Receive Date: 20040908
  Receipt Date: 20040902
  Transmission Date: 20050211
  Serious: Yes (Hospitalization)
  Sender: FDA-Public Use
  Company Number: 200419878BWH

PATIENT
  Age: 79 Year
  Sex: Female
  Weight: 79.3795 kg

DRUGS (9)
  1. AVELOX [Suspect]
     Indication: SINUSITIS
     Dosage: 400 MG, QD, ORAL
     Route: 048
     Dates: start: 20040628, end: 20040702
  2. BEXTRA [Concomitant]
  3. VIOXX [Concomitant]
  4. EVISTA [Concomitant]
  5. ZANTAC [Concomitant]
  6. NEURONTIN [Concomitant]
  7. GLUCOSAMINE [Concomitant]
  8. MG [Concomitant]
  9. CA [Concomitant]

REACTIONS (11)
  - ANAEMIA [None]
  - AUTOIMMUNE THROMBOCYTOPENIA [None]
  - BLOOD BILIRUBIN INCREASED [None]
  - CHOLELITHIASIS [None]
  - CONTUSION [None]
  - GASTRITIS [None]
  - HAEMATEMESIS [None]
  - IDIOPATHIC THROMBOCYTOPENIC PURPURA [None]
  - NAUSEA [None]
  - UPPER GASTROINTESTINAL HAEMORRHAGE [None]
  - WHITE BLOOD CELL COUNT INCREASED [None]
